FAERS Safety Report 4788308-1 (Version None)
Quarter: 2005Q4

REPORT INFORMATION
  Report Type: 
  Country: None (occurrence: None)
  Receive Date: 20051003
  Receipt Date: 20050926
  Transmission Date: 20060501
  Serious: Yes (Other)
  Sender: FDA-Public Use
  Company Number: 2005133806

PATIENT
  Age: 61 Year
  Sex: Female

DRUGS (4)
  1. CELEBREX [Suspect]
     Indication: PAIN IN EXTREMITY
     Dosage: 1 IN 1 D
     Dates: start: 20030101
  2. METFORMIN HCL [Concomitant]
  3. ZOCOR [Concomitant]
  4. URIRETIC (HYDROCHLOROTHIAZIDE, MOEXIPRIL HYDROCHLORIDE) [Concomitant]

REACTIONS (2)
  - ARTHROPATHY [None]
  - TREATMENT NONCOMPLIANCE [None]
